FAERS Safety Report 24796361 (Version 1)
Quarter: 2025Q1

REPORT INFORMATION
  Report Type: Report from Study
  Country: US (occurrence: US)
  Receive Date: 20250101
  Receipt Date: 20250101
  Transmission Date: 20250409
  Serious: No
  Sender: ACADIA PHARMACEUTICALS
  Company Number: US-ACADIA PHARMACEUTICALS INC.-ACA-2024-PIM-008935

PATIENT
  Age: 65 Year
  Sex: Male

DRUGS (19)
  1. NUPLAZID [Suspect]
     Active Substance: PIMAVANSERIN TARTRATE
     Indication: Parkinson^s disease
     Dosage: 34 MILLIGRAM, QD
     Route: 048
     Dates: start: 20230418
  2. NUPLAZID [Suspect]
     Active Substance: PIMAVANSERIN TARTRATE
     Indication: Hallucination
  3. PANTOPRAZOLE [Concomitant]
     Active Substance: PANTOPRAZOLE
  4. LISINOPRIL [Concomitant]
     Active Substance: LISINOPRIL
  5. VITAMINS [Concomitant]
     Active Substance: VITAMINS
  6. GABAPENTIN [Concomitant]
     Active Substance: GABAPENTIN
  7. LORAZEPAM [Concomitant]
     Active Substance: LORAZEPAM
  8. ESCITALOPRAM [Concomitant]
     Active Substance: ESCITALOPRAM OXALATE
  9. TRAZODONE [Concomitant]
     Active Substance: TRAZODONE HYDROCHLORIDE
  10. IRON [Concomitant]
     Active Substance: IRON
  11. HYDROXYZINE PAMOATE [Concomitant]
     Active Substance: HYDROXYZINE PAMOATE
  12. CARBIDOPA\LEVODOPA [Concomitant]
     Active Substance: CARBIDOPA\LEVODOPA
  13. TRAMADOL [Concomitant]
     Active Substance: TRAMADOL
  14. LIDOCAINE [Concomitant]
     Active Substance: LIDOCAINE
  15. MUCINEX [Concomitant]
     Active Substance: GUAIFENESIN
  16. OFLOXACIN [Concomitant]
     Active Substance: OFLOXACIN
  17. ASPIRIN [Concomitant]
     Active Substance: ASPIRIN
  18. TYLENOL [Concomitant]
     Active Substance: ACETAMINOPHEN
  19. IBUPROFEN [Concomitant]
     Active Substance: IBUPROFEN

REACTIONS (1)
  - Abdominal pain upper [Recovered/Resolved]

NARRATIVE: CASE EVENT DATE: 20241227
